FAERS Safety Report 6196442-7 (Version None)
Quarter: 2009Q2

REPORT INFORMATION
  Report Type: 
  Country: None (occurrence: None)
  Receive Date: 20090518
  Receipt Date: 20090518
  Transmission Date: 20091009
  Serious: Yes (Other)
  Sender: FDA-Public Use
  Company Number: None

PATIENT
  Age: 54 Year
  Sex: Male
  Weight: 99.7913 kg

DRUGS (3)
  1. SUTENT [Suspect]
     Indication: RENAL CELL CARCINOMA
     Dosage: 50 MG DAILY PO
     Route: 048
     Dates: start: 20090201, end: 20090514
  2. FERROUS SULFATE TAB [Concomitant]
  3. MULTI-VITAMINS [Concomitant]

REACTIONS (2)
  - PAIN IN EXTREMITY [None]
  - WEIGHT BEARING DIFFICULTY [None]
